FAERS Safety Report 4855171-X (Version None)
Quarter: 2005Q4

REPORT INFORMATION
  Report Type: 
  Country: None (occurrence: None)
  Receive Date: 20051125
  Receipt Date: 20050811
  Transmission Date: 20060501
  Serious: Yes (Other)
  Sender: FDA-Public Use
  Company Number: US-JNJFOC-20050803160

PATIENT
  Age: 35 Year
  Sex: Male
  Weight: 95 kg

DRUGS (3)
  1. LEVAQUIN [Suspect]
     Indication: PANCREATITIS NECROTISING
     Dosage: 500 MG, 1 IN 1 DAY
     Dates: start: 20050701
  2. PREVACID [Concomitant]
  3. HEPARIN [Concomitant]

REACTIONS (1)
  - GRAND MAL CONVULSION [None]
